FAERS Safety Report 5045067-5 (Version None)
Quarter: 2006Q2

REPORT INFORMATION
  Report Type: 
  Country: None (occurrence: None)
  Receive Date: 20060626
  Receipt Date: 20060613
  Transmission Date: 20061013
  Serious: Yes (Hospitalization, Disabling, Other)
  Sender: FDA-Public Use
  Company Number: 200410546BBE

PATIENT
  Age: 21 Month
  Sex: Male

DRUGS (42)
  1. HYPRHO-D [Suspect]
     Indication: RHESUS INCOMPATIBILITY
     Dates: start: 19941216
  2. HYPRHO-D [Suspect]
     Indication: RHESUS INCOMPATIBILITY
     Dates: start: 19950303
  3. HYPRHO-D [Suspect]
  4. THIMEROSAL ^MERTHIOLATE^ (THIMEROSAL) [Suspect]
  5. PRELONE [Concomitant]
  6. HEPATITIS B VACCINE [Concomitant]
  7. RACEMIC EPINEPHRINE [Concomitant]
  8. ROCEPHIN [Concomitant]
  9. ZITHROMAX [Concomitant]
  10. AMPICILLIN [Concomitant]
  11. DECADRON [Concomitant]
  12. RITALIN [Concomitant]
  13. CORTICOSTEROIDS [Concomitant]
  14. SOLU-MEDROL [Concomitant]
  15. ALBUTEROL SULFATE [Concomitant]
  16. STRATTERA [Concomitant]
  17. CONCERTA [Concomitant]
  18. AQUAMEPHYTON [Concomitant]
  19. ERYTHROMYCIN [Concomitant]
  20. DPT [Concomitant]
  21. POLIOVIRUS VACCINE [POLIOVIRUS VACCINE LIVE ORAL] [Concomitant]
  22. HIB (HAEMOPHILUS INFLUENZA B) [Concomitant]
  23. M-M-R II [Concomitant]
  24. IPV (POLIOMYELITIS VACCINE INACTIVATED) [Concomitant]
  25. VARICELLA (VARICELLA VIRUS VACCINE, LIVE) [Concomitant]
  26. TUSSIN (TUSSINE SYRUP) [Concomitant]
  27. OXYGEN [Concomitant]
  28. HISTINEX HC [Concomitant]
  29. POLYMYXIN B/TMP EYE DROPS [Concomitant]
  30. ALBUTEROL SPIROS [Concomitant]
  31. PREDNISOLONE [Concomitant]
  32. DEXTROSTAT [Concomitant]
  33. M-END [Concomitant]
  34. METHYLPHENIDATE HCL [Concomitant]
  35. AUGMENTIN '125' [Concomitant]
  36. CEFZIL [Concomitant]
  37. ZYRTEC [Concomitant]
  38. XOPENEX [Concomitant]
  39. AMOXIL [Concomitant]
  40. OMNICEF [Concomitant]
  41. DEXEDRINE [Concomitant]
  42. METHADONE HCL [Concomitant]

REACTIONS (32)
  - ADENOIDAL HYPERTROPHY [None]
  - ATTENTION DEFICIT/HYPERACTIVITY DISORDER [None]
  - AUTISM [None]
  - AVERSION [None]
  - CALCULUS URETERIC [None]
  - CALCULUS URINARY [None]
  - COMMUNICATION DISORDER [None]
  - CONGENITAL ANOMALY [None]
  - CREATINE URINE INCREASED [None]
  - CROUP INFECTIOUS [None]
  - DIARRHOEA [None]
  - DISEASE RECURRENCE [None]
  - DRUG EXPOSURE DURING PREGNANCY [None]
  - EAR INFECTION [None]
  - FORCEPS DELIVERY [None]
  - HAEMATURIA [None]
  - INTERSTITIAL LUNG DISEASE [None]
  - LARYNGEAL STENOSIS [None]
  - LARYNGOTRACHEO BRONCHITIS [None]
  - LEARNING DISABILITY [None]
  - MENTAL IMPAIRMENT [None]
  - METAL POISONING [None]
  - NEURODEVELOPMENTAL DISORDER [None]
  - OTITIS MEDIA [None]
  - PERSONALITY DISORDER [None]
  - PSYCHOMOTOR SKILLS IMPAIRED [None]
  - ROAD TRAFFIC ACCIDENT [None]
  - URINARY TRACT OBSTRUCTION [None]
  - URINE CALCIUM INCREASED [None]
  - URINE MERCURY ABNORMAL [None]
  - VACUUM EXTRACTOR DELIVERY [None]
  - VIRAL PHARYNGITIS [None]
